FAERS Safety Report 21574906 (Version 1)
Quarter: 2022Q4

REPORT INFORMATION
  Report Type: Spontaneous
  Country: US (occurrence: US)
  Receive Date: 20221110
  Receipt Date: 20221110
  Transmission Date: 20230113
  Serious: Yes (Congenital Anomaly)
  Sender: FDA-Public Use
  Company Number: US-SPECGX-T202202275

PATIENT

DRUGS (1)
  1. METHADONE [Suspect]
     Active Substance: METHADONE HYDROCHLORIDE
     Indication: Product used for unknown indication
     Dosage: UNK
     Route: 064

REACTIONS (8)
  - Cleft lip [Unknown]
  - Strabismus congenital [Unknown]
  - Plagiocephaly [Unknown]
  - Penile adhesion [Unknown]
  - Urethral meatus stenosis [Unknown]
  - Rhinitis [Unknown]
  - Exposure to communicable disease [Unknown]
  - Foetal exposure during pregnancy [Unknown]
